FAERS Safety Report 7540626-X (Version None)
Quarter: 2011Q2

REPORT INFORMATION
  Report Type: 
  Country: None (occurrence: None)
  Receive Date: 20110610
  Receipt Date: 20110607
  Transmission Date: 20111010
  Serious: Yes (Disabling, Other)
  Sender: FDA-Public Use
  Company Number: US-PFIZER INC-2011124516

PATIENT
  Sex: Female
  Weight: 79.365 kg

DRUGS (5)
  1. LYRICA [Suspect]
     Dosage: 75 MG, 3X/DAY
     Route: 048
  2. ZOLOFT [Suspect]
     Indication: NEURALGIA
     Dosage: 100 MG, DAILY
     Route: 048
  3. VALTREX [Concomitant]
     Indication: HERPES SIMPLEX
     Dosage: 1000 MG, 3X/DAY
  4. LYRICA [Suspect]
     Indication: NEURALGIA
     Dosage: 50 MG, 3X/DAY
     Route: 048
     Dates: start: 20100101
  5. LYRICA [Suspect]
     Indication: FIBROMYALGIA
     Dosage: 150 MG, 3X/DAY
     Route: 048
     Dates: end: 20110108

REACTIONS (19)
  - NEURALGIA [None]
  - FORMICATION [None]
  - OEDEMA [None]
  - GAIT DISTURBANCE [None]
  - ACTIVITIES OF DAILY LIVING IMPAIRED [None]
  - DEPRESSION [None]
  - DIZZINESS [None]
  - HYPERCHLORHYDRIA [None]
  - SKIN DISORDER [None]
  - WITHDRAWAL SYNDROME [None]
  - MUSCULAR WEAKNESS [None]
  - CHRONIC FATIGUE SYNDROME [None]
  - AMNESIA [None]
  - FEELING ABNORMAL [None]
  - HYPERHIDROSIS [None]
  - ARTHROPATHY [None]
  - DRUG INEFFECTIVE [None]
  - PAIN IN EXTREMITY [None]
  - NAUSEA [None]
